FAERS Safety Report 5344269-8 (Version None)
Quarter: 2007Q2

REPORT INFORMATION
  Report Type: 
  Country: None (occurrence: None)
  Receive Date: 20070604
  Receipt Date: 20070524
  Transmission Date: 20071010
  Serious: Yes (Hospitalization)
  Sender: FDA-Public Use
  Company Number: JP-JNJFOC-20070405866

PATIENT
  Sex: Male

DRUGS (15)
  1. LEVOFLOXACIN [Suspect]
     Indication: RESPIRATORY TRACT INFECTION
     Route: 042
  2. BROACT [Suspect]
     Indication: COUGH
     Route: 042
  3. BROACT [Suspect]
     Indication: PYREXIA
     Route: 042
  4. OMEGACIN [Suspect]
     Indication: INFLAMMATION
     Route: 042
  5. PRODIF [Suspect]
     Indication: INFLAMMATION
     Route: 042
  6. VOLTAREN [Concomitant]
     Indication: PYREXIA
     Route: 048
  7. HUSCODE [Concomitant]
     Route: 048
  8. SOLDEM [Concomitant]
     Route: 042
  9. BFLUID [Concomitant]
     Route: 042
  10. SOLU-MEDROL [Concomitant]
     Indication: INFLAMMATION
     Route: 042
  11. FUNGUARD [Concomitant]
     Indication: INFLAMMATION
     Route: 042
  12. SOLDEM [Concomitant]
     Route: 042
  13. SENNOSIDE [Concomitant]
     Indication: CONSTIPATION
     Route: 048
  14. ISCOTIN [Concomitant]
     Route: 048
  15. TAKEPRON [Concomitant]
     Indication: GASTRIC ULCER
     Route: 048

REACTIONS (1)
  - EOSINOPHILIC PNEUMONIA [None]
